FAERS Safety Report 8517599-6 (Version None)
Quarter: 2012Q2

REPORT INFORMATION
  Report Type: 
  Country: None (occurrence: None)
  Receive Date: 20120406
  Receipt Date: 20090708
  Transmission Date: 20120825
  Serious: Yes (Death)
  Sender: FDA-Public Use
  Company Number: PHEH2009US06786

PATIENT
  Age: 55 Year
  Sex: Male

DRUGS (14)
  1. COUMADIN [Concomitant]
  2. SUTENT [Concomitant]
  3. TASIGNA [Suspect]
     Indication: GASTROINTESTINAL STROMAL TUMOUR
     Dosage: 200 MG, BID,ORAL
     Route: 048
     Dates: start: 20090311, end: 20090323
  4. ZANAFLEX [Concomitant]
  5. LORAZEPAM [Concomitant]
  6. LASIX [Concomitant]
  7. POTASSIUM (POTASSIUM) [Concomitant]
  8. PREDNISONE TAB [Concomitant]
  9. ACCUPRIL (QUUINAPRIL HYDROCHLORIDE) [Concomitant]
  10. OXYCONTIN [Concomitant]
  11. COMPAZINE [Concomitant]
  12. MEGACE [Concomitant]
  13. TOPROLOL XL (METOPROLOL SUCCINATE) [Concomitant]
  14. ZANTAC [Concomitant]

REACTIONS (1)
  - NEOPLASM MALIGNANT [None]
